FAERS Safety Report 4885315-5 (Version None)
Quarter: 2006Q1

REPORT INFORMATION
  Report Type: 
  Country: None (occurrence: None)
  Receive Date: 20060119
  Receipt Date: 20060113
  Transmission Date: 20060701
  Serious: Yes (Hospitalization)
  Sender: FDA-Public Use
  Company Number: FR-AVENTIS-200610187FR

PATIENT
  Sex: Male

DRUGS (2)
  1. LANTUS [Suspect]
     Indication: DIABETES MELLITUS NON-INSULIN-DEPENDENT
     Route: 058
  2. DIURETICS [Concomitant]

REACTIONS (4)
  - DEHYDRATION [None]
  - FATIGUE [None]
  - GASTROENTERITIS VIRAL [None]
  - HYPOKALAEMIA [None]
